FAERS Safety Report 12538725 (Version 4)
Quarter: 2016Q3

REPORT INFORMATION
  Report Type: Spontaneous
  Country: JP (occurrence: JP)
  Receive Date: 20160708
  Receipt Date: 20160912
  Transmission Date: 20161109
  Serious: Yes (Life-Threatening, Other)
  Sender: FDA-Public Use
  Company Number: JP-TAKEDA-2016TJP013662AA

PATIENT
  Age: 61 Year
  Sex: Male
  Weight: 62.8 kg

DRUGS (1)
  1. NESINA [Suspect]
     Active Substance: ALOGLIPTIN BENZOATE
     Indication: TYPE 2 DIABETES MELLITUS
     Dosage: 25 MG, QD
     Route: 048
     Dates: start: 20150625, end: 20150828

REACTIONS (2)
  - Pancreatitis acute [Recovering/Resolving]
  - Pancreatic carcinoma [Unknown]

NARRATIVE: CASE EVENT DATE: 20150828
